FAERS Safety Report 6157007-6 (Version None)
Quarter: 2009Q2

REPORT INFORMATION
  Report Type: 
  Country: None (occurrence: None)
  Receive Date: 20090416
  Receipt Date: 20090407
  Transmission Date: 20091009
  Serious: Yes (Hospitalization, Other)
  Sender: FDA-Public Use
  Company Number: US-ROXANE LABORATORIES, INC.-2009-RO-00352RO

PATIENT
  Age: 54 Year
  Sex: Female

DRUGS (21)
  1. MORPHINE [Suspect]
     Indication: PAIN
     Dosage: 5MG
     Route: 037
     Dates: start: 19990601
  2. MORPHINE [Suspect]
     Dosage: 1.2MG
     Route: 037
     Dates: start: 19971201
  3. MORPHINE [Suspect]
     Dosage: 10MG
     Route: 037
     Dates: start: 19980301
  4. MORPHINE [Suspect]
     Dosage: 10MG
     Route: 037
     Dates: start: 20000101
  5. MORPHINE [Suspect]
     Dosage: 5.5MG
     Route: 037
     Dates: start: 20010801
  6. MORPHINE [Suspect]
     Dosage: 14MG
     Route: 037
     Dates: start: 20061101
  7. MORPHINE [Suspect]
     Route: 042
  8. HYDROMORPHONE HCL [Suspect]
     Indication: PAIN
     Dosage: 6MG
     Route: 037
     Dates: start: 19980301
  9. HYDROMORPHONE HCL [Suspect]
     Dosage: 15MG
     Route: 037
     Dates: start: 19980401
  10. CLONIDINE [Suspect]
     Indication: PAIN
     Dosage: 5.5MG
     Route: 037
     Dates: start: 20010801
  11. CLONIDINE [Suspect]
     Dosage: 10MG
     Route: 037
     Dates: start: 20060101
  12. CLONIDINE [Suspect]
     Dosage: 14MG
     Route: 037
     Dates: start: 20061101
  13. BUPIVACAINE [Suspect]
     Indication: PAIN
     Dosage: 15MG
     Route: 037
     Dates: start: 19980401
  14. BUPIVACAINE [Suspect]
     Dosage: 5MG
     Route: 037
     Dates: start: 19990601
  15. BUPIVACAINE [Suspect]
     Dosage: 10MG
     Route: 037
     Dates: start: 20000101
  16. BUPIVACAINE [Suspect]
     Dosage: 5.5MG
     Route: 037
     Dates: start: 20010801
  17. BUPIVACAINE [Suspect]
     Dosage: 14MG
     Route: 037
     Dates: start: 20061101
  18. PREGABALIN [Concomitant]
     Indication: PAIN
     Dosage: 300MG
  19. OXYCODONE HCL [Concomitant]
     Indication: PAIN
  20. FENTANYL [Concomitant]
     Indication: PAIN
     Route: 060
  21. LIDOCAINE [Concomitant]
     Indication: PAIN
     Route: 062

REACTIONS (2)
  - DRUG TOLERANCE [None]
  - GRANULOMA [None]
